FAERS Safety Report 6762674-X (Version None)
Quarter: 2010Q2

REPORT INFORMATION
  Report Type: 
  Country: None (occurrence: None)
  Receive Date: 20100609
  Receipt Date: 20100601
  Transmission Date: 20101027
  Serious: Yes (Hospitalization)
  Sender: FDA-Public Use
  Company Number: A0856764A

PATIENT
  Age: 50 Year
  Sex: Female

DRUGS (20)
  1. ADVAIR DISKUS 100/50 [Suspect]
     Dosage: 1PUFF TWICE PER DAY
     Route: 055
     Dates: start: 20080101
  2. PROTONIX [Concomitant]
  3. HYDROCORTISONE [Concomitant]
  4. AMBIEN CR [Concomitant]
  5. SERTRALINE HCL [Concomitant]
  6. BUSPAR [Concomitant]
  7. VALIUM [Concomitant]
  8. DILAUDID [Concomitant]
  9. MS CONTIN [Concomitant]
  10. AZELASTIN [Concomitant]
  11. COQ10 [Concomitant]
  12. VITAMIN C [Concomitant]
  13. VITAMIN D [Concomitant]
  14. SUPER B COMPLEX [Concomitant]
  15. ALBUTEROL [Concomitant]
  16. VITAMIN B-12 [Concomitant]
  17. UNSPECIFIED MEDICATION [Concomitant]
  18. UNSPECIFIED MEDICATION [Concomitant]
  19. PHENERGAN [Concomitant]
  20. PREDNISONE [Concomitant]

REACTIONS (6)
  - ASTHMA [None]
  - DRUG ADMINISTRATION ERROR [None]
  - DRUG INEFFECTIVE [None]
  - PNEUMONIA [None]
  - PRODUCT QUALITY ISSUE [None]
  - SINUSITIS [None]
